FAERS Safety Report 5179459-0 (Version None)
Quarter: 2006Q4

REPORT INFORMATION
  Report Type: 
  Country: None (occurrence: None)
  Receive Date: 20061219
  Receipt Date: 20061127
  Transmission Date: 20070319
  Serious: Yes (Death, Hospitalization, Other)
  Sender: FDA-Public Use
  Company Number: FR-BRISTOL-MYERS SQUIBB COMPANY-13591532

PATIENT
  Age: 48 Year
  Sex: Female
  Weight: 33 kg

DRUGS (7)
  1. VIDEX [Suspect]
     Indication: HIV INFECTION
     Route: 048
     Dates: start: 20060504, end: 20061024
  2. EPIVIR [Suspect]
     Route: 048
     Dates: start: 20060504, end: 20061024
  3. ZIAGEN [Suspect]
     Route: 048
     Dates: start: 20060504, end: 20061024
  4. PROZAC [Suspect]
     Dates: start: 20060309
  5. ATARAX [Concomitant]
  6. NEXIUM [Concomitant]
  7. IMOVANE [Concomitant]

REACTIONS (4)
  - DEATH [None]
  - DYSPNOEA [None]
  - GENERAL PHYSICAL HEALTH DETERIORATION [None]
  - PULMONARY HYPERTENSION [None]
